FAERS Safety Report 24554421 (Version 2)
Quarter: 2024Q4

REPORT INFORMATION
  Report Type: Spontaneous
  Country: US (occurrence: US)
  Receive Date: 20241028
  Receipt Date: 20241122
  Transmission Date: 20250115
  Serious: No
  Sender: AMGEN
  Company Number: US-AMGEN-USASP2024209958

PATIENT
  Sex: Male

DRUGS (10)
  1. PROCYSBI [Suspect]
     Active Substance: CYSTEAMINE BITARTRATE
     Indication: Cystinosis
     Dosage: 450 MILLIGRAM
  2. PROCYSBI [Suspect]
     Active Substance: CYSTEAMINE BITARTRATE
     Dosage: 375 MILLIGRAM, BID  (GIVE ONE 75 MG PACKET AND ONE 300 MG PACKET, TOTAL DAILY DOSE 750 MG)
  3. PROCYSBI [Suspect]
     Active Substance: CYSTEAMINE BITARTRATE
     Dosage: 375 MILLIGRAM, QD
     Dates: start: 202407
  4. DIAZEPAM [Concomitant]
     Active Substance: DIAZEPAM
     Dosage: UNK (5-7.5-10MG KIT)
  5. ZOFRAN [Concomitant]
     Active Substance: ONDANSETRON HYDROCHLORIDE
     Dosage: 4 MILLIGRAM
  6. Poly Vi Sol [Concomitant]
     Dosage: UNK  (750-35/ML )
  7. MIRALAX [Concomitant]
     Active Substance: POLYETHYLENE GLYCOL 3350
     Dosage: 17 GRAM (17G/DOSE )
  8. INDOMETHACIN [Concomitant]
     Active Substance: INDOMETHACIN
     Dosage: UNK
  9. Ironup [Concomitant]
     Dosage: 15 MILLIGRAM /0.5 MILLILITRE
  10. LEVOCARNITINE [Concomitant]
     Active Substance: LEVOCARNITINE
     Dosage: 1 GRAM /10 MILLILITRE

REACTIONS (1)
  - Vomiting [Unknown]
